FAERS Safety Report 6593592-8 (Version None)
Quarter: 2010Q1

REPORT INFORMATION
  Report Type: 
  Country: None (occurrence: None)
  Receive Date: 20100222
  Receipt Date: 20090817
  Transmission Date: 20100710
  Serious: No
  Sender: FDA-Public Use
  Company Number: US-BRISTOL-MYERS SQUIBB COMPANY-14742928

PATIENT
  Age: 62 Year
  Sex: Female
  Weight: 66 kg

DRUGS (15)
  1. ORENCIA [Suspect]
     Indication: RHEUMATOID ARTHRITIS
     Dosage: RECEIVED 4 INFUSIONS
     Route: 042
  2. GABAPENTIN [Concomitant]
  3. POTASSIUM [Concomitant]
  4. ACCUPRIL [Concomitant]
  5. COREG [Concomitant]
  6. SALAGEN [Concomitant]
  7. PILOCARPINE HYDROCHLORIDE [Concomitant]
  8. PREDNISONE [Concomitant]
  9. SULFASALAZINE [Concomitant]
  10. SINGULAIR [Concomitant]
  11. XANAX [Concomitant]
  12. RESTASIS [Concomitant]
  13. RECLAST [Concomitant]
  14. LASIX [Concomitant]
  15. CLONAZEPAM [Concomitant]

REACTIONS (1)
  - DRUG INEFFECTIVE [None]
